FAERS Safety Report 8245596-7 (Version None)
Quarter: 2012Q1

REPORT INFORMATION
  Report Type: 
  Country: None (occurrence: None)
  Receive Date: 20120330
  Receipt Date: 20120323
  Transmission Date: 20120608
  Serious: Yes (Hospitalization)
  Sender: FDA-Public Use
  Company Number: US-AMGEN-USASP2012006588

PATIENT
  Age: 60 Year
  Sex: Female

DRUGS (1)
  1. ENBREL [Suspect]
     Indication: RHEUMATOID ARTHRITIS
     Dosage: 25 MG, 2 TIMES/WK
     Dates: start: 20020101

REACTIONS (13)
  - MOBILITY DECREASED [None]
  - ASTHENIA [None]
  - FINGER DEFORMITY [None]
  - OSTEOARTHRITIS [None]
  - GASTROOESOPHAGEAL REFLUX DISEASE [None]
  - OEDEMA PERIPHERAL [None]
  - PAIN IN EXTREMITY [None]
  - STRESS [None]
  - JOINT DISLOCATION [None]
  - THERAPEUTIC RESPONSE DECREASED [None]
  - FEMUR FRACTURE [None]
  - NECK PAIN [None]
  - MUSCULOSKELETAL PAIN [None]
